FAERS Safety Report 10586855 (Version 2)
Quarter: 2014Q4

REPORT INFORMATION
  Report Type: Spontaneous
  Country: JP (occurrence: JP)
  Receive Date: 20141117
  Receipt Date: 20141201
  Transmission Date: 20150529
  Serious: Yes (Other)
  Sender: FDA-Public Use
  Company Number: JP-GLAXOSMITHKLINE-JP2014JPN019434

PATIENT
  Age: 57 Year
  Sex: Female
  Weight: 53 kg

DRUGS (1)
  1. GW685698 + GW642444 [Suspect]
     Active Substance: FLUTICASONE FUROATE\VILANTEROL TRIFENATATE
     Indication: ASTHMA
     Dosage: 200 ?G, QD
     Dates: start: 20140624, end: 20141111

REACTIONS (2)
  - Dysphonia [Recovering/Resolving]
  - Oesophageal candidiasis [Unknown]

NARRATIVE: CASE EVENT DATE: 201410
